FAERS Safety Report 13572058 (Version 2)
Quarter: 2017Q2

REPORT INFORMATION
  Report Type: Spontaneous
  Country: US (occurrence: US)
  Receive Date: 20170523
  Receipt Date: 20170619
  Transmission Date: 20170830
  Serious: Yes (Other)
  Sender: FDA-Public Use
  Company Number: US-PFIZER INC-2017223288

PATIENT
  Age: 68 Year
  Sex: Female
  Weight: 48.99 kg

DRUGS (8)
  1. IBRANCE [Suspect]
     Active Substance: PALBOCICLIB
     Indication: BREAST CANCER
     Dosage: 100 MG, CYCLIC (ONCE A DAY ON FOR 1 WEEK, OFF FOR 1 WEEK)
     Route: 048
     Dates: start: 2016, end: 20170605
  2. PEPCID [Concomitant]
     Active Substance: FAMOTIDINE
     Indication: DYSPEPSIA
     Dosage: 10 MG, AS NEEDED
     Route: 048
  3. XGEVA [Concomitant]
     Active Substance: DENOSUMAB
     Indication: BONE DISORDER
     Dosage: UNK, EVERY 28 DAYS
     Dates: start: 2015
  4. FASLODEX [Concomitant]
     Active Substance: FULVESTRANT
     Dosage: 250 MG, UNK (ONE ON EACH SIDE OF THE BUTT FOR A TOTAL OF 500MG, 2 INJECTION EVERY 28 DAYS)
     Dates: start: 2015
  5. XGEVA [Concomitant]
     Active Substance: DENOSUMAB
     Dosage: UNK (EVERY 28 DAYS)
     Dates: start: 2016
  6. FASLODEX [Concomitant]
     Active Substance: FULVESTRANT
     Dosage: 500 MG, UNK (250 MGS X 2 EVERY 28 DAYS)
     Dates: start: 2016
  7. IBRANCE [Suspect]
     Active Substance: PALBOCICLIB
     Dosage: 75 MG, CYCLIC (ONCE A DAY, 2 WEEKS OFF, 1 WEEK ON)
     Route: 048
  8. IBRANCE [Suspect]
     Active Substance: PALBOCICLIB
     Dosage: 75 MG, CYCLIC (EVERY OTHER WEEK/1 WEEK ON 1 WEEK OFF)
     Route: 048

REACTIONS (4)
  - Aspartate aminotransferase increased [Not Recovered/Not Resolved]
  - Neutrophil count decreased [Not Recovered/Not Resolved]
  - Platelet disorder [Not Recovered/Not Resolved]
  - Alanine aminotransferase increased [Not Recovered/Not Resolved]

NARRATIVE: CASE EVENT DATE: 201608
